FAERS Safety Report 19461683 (Version 1)
Quarter: 2021Q2

REPORT INFORMATION
  Report Type: Spontaneous
  Country: IN (occurrence: IN)
  Receive Date: 20210625
  Receipt Date: 20210625
  Transmission Date: 20210717
  Serious: Yes (Death)
  Sender: FDA-Public Use
  Company Number: IN-PFIZER INC-2021015131

PATIENT
  Age: 60 Year
  Sex: Female

DRUGS (3)
  1. PALBACE [Suspect]
     Active Substance: PALBOCICLIB
     Dosage: 100 MG, CYCLIC (OD 3 WEEKS ON (21) 1 WEEK OFF)
     Route: 048
     Dates: start: 20210105, end: 20210403
  2. PALBACE [Suspect]
     Active Substance: PALBOCICLIB
     Indication: BREAST CANCER METASTATIC
     Dosage: 100 MG, 1X/DAY
     Route: 048
     Dates: start: 20200512
  3. LETROZOLE. [Concomitant]
     Active Substance: LETROZOLE
     Dosage: 2.5 MG, 1X/DAY (OD, 30)

REACTIONS (3)
  - Malaise [Unknown]
  - Death [Fatal]
  - Dyspepsia [Unknown]

NARRATIVE: CASE EVENT DATE: 20210403
